FAERS Safety Report 5069410-6 (Version None)
Quarter: 2006Q3

REPORT INFORMATION
  Report Type: 
  Country: None (occurrence: None)
  Receive Date: 20060803
  Receipt Date: 20060627
  Transmission Date: 20061208
  Serious: Yes (Other)
  Sender: FDA-Public Use
  Company Number: NSADSS2001019371

PATIENT
  Age: 17 Year
  Sex: Female

DRUGS (2)
  1. REMICADE [Suspect]
     Indication: FISTULA
     Route: 041
  2. REMICADE [Suspect]
     Indication: CROHN'S DISEASE
     Route: 041

REACTIONS (1)
  - ANAPHYLACTIC SHOCK [None]
